APPROVED DRUG PRODUCT: PROPACET 100
Active Ingredient: ACETAMINOPHEN; PROPOXYPHENE NAPSYLATE
Strength: 650MG;100MG
Dosage Form/Route: TABLET;ORAL
Application: A070107 | Product #001
Applicant: TEVA PHARMACEUTICALS USA INC
Approved: Jun 12, 1985 | RLD: No | RS: No | Type: DISCN